FAERS Safety Report 13276246 (Version 2)
Quarter: 2017Q1

REPORT INFORMATION
  Report Type: Spontaneous
  Country: US (occurrence: US)
  Receive Date: 20170228
  Receipt Date: 20170327
  Transmission Date: 20170428
  Serious: No
  Sender: FDA-Public Use
  Company Number: US-GLAXOSMITHKLINE-US2017026816

PATIENT
  Sex: Female

DRUGS (1)
  1. VENTOLIN HFA [Suspect]
     Active Substance: ALBUTEROL SULFATE
     Indication: DYSPNOEA
     Dosage: UNK
     Route: 055
     Dates: start: 20170221

REACTIONS (4)
  - Drug ineffective [Unknown]
  - Overdose [Unknown]
  - Muscle tightness [Unknown]
  - Product quality issue [Unknown]

NARRATIVE: CASE EVENT DATE: 20170221
